FAERS Safety Report 24783470 (Version 4)
Quarter: 2025Q1

REPORT INFORMATION
  Report Type: Report from Study
  Country: JP (occurrence: JP)
  Receive Date: 20241227
  Receipt Date: 20250331
  Transmission Date: 20250409
  Serious: Yes (Other)
  Sender: UCB
  Company Number: JP-UCBJ-CD202412773UCBPHAPROD

PATIENT
  Sex: Male
  Weight: 56 kg

DRUGS (4)
  1. FENFLURAMINE HYDROCHLORIDE [Suspect]
     Active Substance: FENFLURAMINE HYDROCHLORIDE
     Indication: Lennox-Gastaut syndrome
     Dosage: 0.1 MILLIGRAM/KILOGRAM, 2X/DAY (BID)
     Route: 048
     Dates: start: 20240704, end: 20241122
  2. VIMPAT [Suspect]
     Active Substance: LACOSAMIDE
     Indication: Lennox-Gastaut syndrome
     Route: 048
  3. VALPROATE SODIUM [Concomitant]
     Active Substance: VALPROATE SODIUM
     Indication: Lennox-Gastaut syndrome
     Route: 048
  4. RUFINAMIDE [Concomitant]
     Active Substance: RUFINAMIDE
     Indication: Lennox-Gastaut syndrome
     Route: 048

REACTIONS (1)
  - Seizure cluster [Unknown]

NARRATIVE: CASE EVENT DATE: 20240912
